FAERS Safety Report 11630082 (Version 1)
Quarter: 2015Q4

REPORT INFORMATION
  Report Type: Report from Study
  Country: US (occurrence: US)
  Receive Date: 20151014
  Receipt Date: 20151014
  Transmission Date: 20160304
  Serious: Yes (Other)
  Sender: FDA-Public Use
  Company Number: US-ASTRAZENECA-2015SE32331

PATIENT
  Sex: Male

DRUGS (3)
  1. OLAPARIB [Suspect]
     Active Substance: OLAPARIB
     Indication: THYROID CANCER
     Route: 048
  2. OLAPARIB [Suspect]
     Active Substance: OLAPARIB
     Indication: THYROID CANCER
     Route: 048
  3. CAPRELSA [Suspect]
     Active Substance: VANDETANIB
     Indication: THYROID CANCER
     Route: 048

REACTIONS (9)
  - Vertigo [Not Recovered/Not Resolved]
  - Pain [Unknown]
  - Product use issue [Unknown]
  - Off label use [Unknown]
  - Fatigue [Unknown]
  - Appetite disorder [Not Recovered/Not Resolved]
  - Blood pressure increased [Recovering/Resolving]
  - Sunburn [Recovered/Resolved]
  - Electrocardiogram abnormal [Unknown]
